FAERS Safety Report 5015593-3 (Version None)
Quarter: 2006Q2

REPORT INFORMATION
  Report Type: 
  Country: None (occurrence: None)
  Receive Date: 20060526
  Receipt Date: 20060518
  Transmission Date: 20061013
  Serious: Yes (Other)
  Sender: FDA-Public Use
  Company Number: 2006066069

PATIENT
  Age: 78 Year
  Sex: Male
  Weight: 63.5036 kg

DRUGS (3)
  1. COOL MINT LISTERINE (MENTHOL, METHYL SALICYLATE, EUCALYPTOL, THYMOL) [Suspect]
     Indication: SMOKING CESSATION THERAPY
     Dosage: ABOUT 1/2 TEASPONE ABOUT 3 TIMES A DAY, ORAL
     Route: 048
  2. LOSARTAN POTASSIUM [Concomitant]
  3. ALLOPURINOL [Concomitant]

REACTIONS (1)
  - INTENTIONAL DRUG MISUSE [None]
